FAERS Safety Report 22343730 (Version 3)
Quarter: 2025Q2

REPORT INFORMATION
  Report Type: Report from Study
  Country: US (occurrence: US)
  Receive Date: 20230519
  Receipt Date: 20250501
  Transmission Date: 20250716
  Serious: Yes (Other)
  Sender: ABBVIE
  Company Number: US-ABBVIE-4768741

PATIENT
  Age: 64 Year
  Sex: Female

DRUGS (1)
  1. SKYRIZI [Suspect]
     Active Substance: RISANKIZUMAB-RZAA
     Indication: Psoriasis
     Route: 058
     Dates: start: 20220913

REACTIONS (8)
  - Spinal operation [Recovering/Resolving]
  - Eye allergy [Recovering/Resolving]
  - Vaccination site erythema [Recovered/Resolved]
  - Breast cancer female [Unknown]
  - Optic nerve disorder [Recovering/Resolving]
  - Vitreous floaters [Recovering/Resolving]
  - Cataract [Recovering/Resolving]
  - Pyrexia [Unknown]

NARRATIVE: CASE EVENT DATE: 20220101
